FAERS Safety Report 21172729 (Version 2)
Quarter: 2022Q3

REPORT INFORMATION
  Report Type: Spontaneous
  Country: FR (occurrence: FR)
  Receive Date: 20220804
  Receipt Date: 20220929
  Transmission Date: 20221026
  Serious: Yes (Other)
  Sender: FDA-Public Use
  Company Number: FR-CHEPLA-2022006618

PATIENT
  Age: 25 Year
  Sex: Male
  Weight: 120 kg

DRUGS (5)
  1. HEPARIN [Suspect]
     Active Substance: HEPARIN SODIUM
     Indication: Anticoagulant therapy
     Dosage: UNK
     Route: 042
  2. ASPIRIN [Suspect]
     Active Substance: ASPIRIN
     Indication: Anticoagulant therapy
     Dosage: 75 MG
  3. CLOPIDOGREL BISULFATE [Suspect]
     Active Substance: CLOPIDOGREL BISULFATE
     Indication: Antiplatelet therapy
     Dosage: UNK
  4. DOBUTAMINE [Concomitant]
     Active Substance: DOBUTAMINE HYDROCHLORIDE
     Indication: Renal failure
     Dosage: 15 UG/KG/MIN (AT A HIGH DOSE OF DOBUTAMINE)
  5. DOBUTAMINE [Concomitant]
     Active Substance: DOBUTAMINE HYDROCHLORIDE
     Indication: Hepatic failure
     Dosage: 10 UG/KG/MIN

REACTIONS (3)
  - Atrial thrombosis [Unknown]
  - Hyperleukocytosis [Recovered/Resolved]
  - Pyrexia [Recovered/Resolved]
